FAERS Safety Report 4302113-1 (Version None)
Quarter: 2004Q1

REPORT INFORMATION
  Report Type: 
  Country: None (occurrence: None)
  Receive Date: 20040220
  Receipt Date: 20040211
  Transmission Date: 20041129
  Serious: Yes (Other)
  Sender: FDA-Public Use
  Company Number: K200400180

PATIENT
  Age: 86 Year
  Sex: Male

DRUGS (7)
  1. ALTACE [Suspect]
     Indication: ESSENTIAL HYPERTENSION
     Dosage: 2.5 MG, QD, ORAL
     Route: 048
     Dates: start: 20040115, end: 20040121
  2. HYDROCHLOROTHIAZIDE [Suspect]
     Indication: ESSENTIAL HYPERTENSION
     Dosage: 12.5 MG, QD, ORAL
     Route: 048
     Dates: start: 20040115, end: 20040121
  3. HYTRIN [Suspect]
     Indication: BENIGN PROSTATIC HYPERPLASIA
     Dosage: 1 MG, QD, ORAL
     Route: 048
     Dates: start: 20040115, end: 20040101
  4. HYTRIN [Suspect]
     Indication: BENIGN PROSTATIC HYPERPLASIA
     Dosage: 2 MG, QD, ORAL
     Route: 048
     Dates: start: 20040101, end: 20040101
  5. HYTRIN [Suspect]
     Indication: BENIGN PROSTATIC HYPERPLASIA
     Dosage: 5 MG, QD, ORAL
     Route: 048
     Dates: start: 20040101, end: 20040121
  6. FRAGMIN (HEPARIN-FRACTION, SODIUM SALT), 2500 IU [Concomitant]
  7. AUGMENTIN (AMOXICILLIN TRIHYDRATE, CLAVULANATE POTASSIUM), 3.6 MG [Concomitant]

REACTIONS (4)
  - BRADYCARDIA [None]
  - HYPOTENSION [None]
  - SOMNOLENCE [None]
  - SYNCOPE VASOVAGAL [None]
